FAERS Safety Report 5087691-X (Version None)
Quarter: 2006Q3

REPORT INFORMATION
  Report Type: 
  Country: None (occurrence: None)
  Receive Date: 20060824
  Receipt Date: 20060616
  Transmission Date: 20061208
  Serious: Yes (Life-Threatening, Hospitalization)
  Sender: FDA-Public Use
  Company Number: GB-GILEAD-2006-0009781

PATIENT
  Sex: Male
  Weight: 82 kg

DRUGS (5)
  1. VIREAD [Suspect]
     Indication: HIV INFECTION
     Route: 048
     Dates: start: 20050801, end: 20060609
  2. ATAZANAVIR [Suspect]
     Indication: HIV INFECTION
     Route: 048
     Dates: start: 20050801, end: 20060609
  3. RITONAVIR [Suspect]
     Indication: HIV INFECTION
     Route: 048
     Dates: start: 20050801, end: 20060609
  4. DIDANOSINE [Suspect]
     Route: 048
     Dates: start: 20050801
  5. SEPTRIN [Concomitant]
     Route: 048
     Dates: start: 20050301

REACTIONS (8)
  - ALANINE AMINOTRANSFERASE INCREASED [None]
  - ASPARTATE AMINOTRANSFERASE INCREASED [None]
  - BLOOD ANTIDIURETIC HORMONE INCREASED [None]
  - BLOOD CREATINE PHOSPHOKINASE INCREASED [None]
  - MUSCLE INJURY [None]
  - MYALGIA [None]
  - MYOGLOBIN BLOOD INCREASED [None]
  - MYOSITIS [None]
